FAERS Safety Report 6490218-9 (Version None)
Quarter: 2009Q4

REPORT INFORMATION
  Report Type: 
  Country: None (occurrence: None)
  Receive Date: 20091210
  Receipt Date: 20091210
  Transmission Date: 20100525
  Serious: Yes (Life-Threatening, Hospitalization, Disabling, Other)
  Sender: FDA-Public Use
  Company Number: None

PATIENT
  Age: 26 Year
  Sex: Female
  Weight: 97.5234 kg

DRUGS (1)
  1. LINEZOLID [Suspect]
     Indication: STAPHYLOCOCCAL INFECTION
     Dosage: 600 MG TWICE DAILY PO
     Route: 048
     Dates: start: 20091130, end: 20091207

REACTIONS (7)
  - BLINDNESS TRANSIENT [None]
  - CONVULSION [None]
  - COORDINATION ABNORMAL [None]
  - HEADACHE [None]
  - HYPERTENSION [None]
  - MUSCULAR WEAKNESS [None]
  - VOMITING [None]
